FAERS Safety Report 6974683-6 (Version None)
Quarter: 2010Q3

REPORT INFORMATION
  Report Type: 
  Country: None (occurrence: None)
  Receive Date: 20100909
  Receipt Date: 20100909
  Transmission Date: 20110219
  Serious: Yes (Hospitalization)
  Sender: FDA-Public Use
  Company Number: None

PATIENT
  Age: 15 Year
  Sex: Male
  Weight: 60 kg

DRUGS (2)
  1. LEVETIRACETAM [Suspect]
     Indication: CONVULSION
     Dosage: 500 MG Q12 IV; 750 MG Q 12 IV
     Route: 042
     Dates: start: 20100801, end: 20100803
  2. LEVETIRACETAM [Suspect]
     Indication: CONVULSION
     Dosage: 500 MG Q12 IV; 750 MG Q 12 IV
     Route: 042
     Dates: start: 20100803, end: 20100804

REACTIONS (4)
  - AGGRESSION [None]
  - DYSTONIA [None]
  - FEELING ABNORMAL [None]
  - VERBAL ABUSE [None]
